FAERS Safety Report 6451200-0 (Version None)
Quarter: 2009Q4

REPORT INFORMATION
  Report Type: 
  Country: None (occurrence: None)
  Receive Date: 20091123
  Receipt Date: 20091116
  Transmission Date: 20100525
  Serious: Yes (Other)
  Sender: FDA-Public Use
  Company Number: AU-PFIZER INC-2009298409

PATIENT
  Sex: Male

DRUGS (1)
  1. XALATAN [Suspect]
     Dosage: UNK
     Route: 047
     Dates: start: 20080401

REACTIONS (7)
  - BLINDNESS TRANSIENT [None]
  - DRY EYE [None]
  - ERYTHEMA OF EYELID [None]
  - EYELID DISORDER [None]
  - EYELID OEDEMA [None]
  - LACRIMATION INCREASED [None]
  - TRANSIENT ISCHAEMIC ATTACK [None]
